FAERS Safety Report 13445106 (Version 3)
Quarter: 2017Q3

REPORT INFORMATION
  Report Type: Spontaneous
  Country: DE (occurrence: DE)
  Receive Date: 20170414
  Receipt Date: 20170922
  Transmission Date: 20171127
  Serious: Yes (Death, Hospitalization, Other)
  Sender: FDA-Public Use
  Company Number: DE-BRISTOL-MYERS SQUIBB COMPANY-BMS-2017-029440

PATIENT
  Age: 72 Year
  Sex: Male

DRUGS (1)
  1. NIVOLUMAB [Suspect]
     Active Substance: NIVOLUMAB
     Indication: NON-SMALL CELL LUNG CANCER
     Dosage: 3 MG, UNK
     Route: 065
     Dates: start: 20170223

REACTIONS (3)
  - General physical health deterioration [Unknown]
  - Respiratory failure [Fatal]
  - Pneumonitis [Fatal]

NARRATIVE: CASE EVENT DATE: 201703
